FAERS Safety Report 24404323 (Version 1)
Quarter: 2024Q4

REPORT INFORMATION
  Report Type: Spontaneous
  Country: DE (occurrence: DE)
  Receive Date: 20241007
  Receipt Date: 20241007
  Transmission Date: 20250115
  Serious: Yes (Other)
  Sender: CELLTRION
  Company Number: DE-AMGEN-DEUSP2024053028

PATIENT

DRUGS (2)
  1. BEVACIZUMAB [Suspect]
     Active Substance: BEVACIZUMAB
     Indication: Limbal stem cell deficiency
     Dosage: 1 MILLIGRAM (SUBCONJUNCTIVAL)
     Route: 065
  2. BEVACIZUMAB [Suspect]
     Active Substance: BEVACIZUMAB
     Indication: Corneal disorder

REACTIONS (5)
  - Corneal epithelium defect [Unknown]
  - Corneal decompensation [Unknown]
  - Intraocular pressure decreased [Unknown]
  - Suture related complication [Unknown]
  - Off label use [Unknown]
